FAERS Safety Report 5120190-5 (Version None)
Quarter: 2006Q4

REPORT INFORMATION
  Report Type: 
  Country: None (occurrence: None)
  Receive Date: 20061004
  Receipt Date: 20060922
  Transmission Date: 20070319
  Serious: Yes (Other)
  Sender: FDA-Public Use
  Company Number: PHEH2006US12167

PATIENT

DRUGS (3)
  1. DIOVAN [Suspect]
     Dosage: UNK, UNK
  2. ACE INHIBITOR NOS [Suspect]
     Dosage: UNK, UNK
  3. DIURETICS [Suspect]
     Dosage: UNK, UNK

REACTIONS (3)
  - CARDIOGENIC SHOCK [None]
  - HYPOTENSION [None]
  - VENTRICULAR DYSFUNCTION [None]
